FAERS Safety Report 6408477-7 (Version None)
Quarter: 2009Q4

REPORT INFORMATION
  Report Type: 
  Country: None (occurrence: None)
  Receive Date: 20091021
  Receipt Date: 20091015
  Transmission Date: 20100525
  Serious: Yes (Hospitalization)
  Sender: FDA-Public Use
  Company Number: GB-TEVA-212588ISR

PATIENT
  Age: 25 Year
  Sex: Male

DRUGS (2)
  1. METHOTREXATE [Suspect]
     Indication: CROHN'S DISEASE
     Route: 030
  2. INFLIXIMAB [Suspect]
     Indication: CROHN'S DISEASE
     Route: 042
     Dates: start: 20041201, end: 20080501

REACTIONS (1)
  - MENINGITIS LISTERIA [None]
